FAERS Safety Report 7429009-0 (Version None)
Quarter: 2011Q2

REPORT INFORMATION
  Report Type: 
  Country: None (occurrence: None)
  Receive Date: 20110421
  Receipt Date: 20110408
  Transmission Date: 20111010
  Serious: Yes (Hospitalization)
  Sender: FDA-Public Use
  Company Number: JP-BAYER-200913684BYL

PATIENT
  Age: 23 Year
  Sex: Male
  Weight: 59 kg

DRUGS (2)
  1. NEXAVAR [Suspect]
     Indication: RENAL CELL CARCINOMA
     Dosage: 800 MG (DAILY DOSE), , ORAL
     Route: 048
     Dates: start: 20090916, end: 20090930
  2. PURSENNID [Concomitant]
     Indication: CONSTIPATION
     Dosage: 24 MG (DAILY DOSE), , ORAL
     Route: 048
     Dates: start: 20090925

REACTIONS (8)
  - MALLORY-WEISS SYNDROME [None]
  - DECREASED APPETITE [None]
  - HICCUPS [None]
  - DIARRHOEA [None]
  - PYREXIA [None]
  - HYPERTENSION [None]
  - RASH GENERALISED [None]
  - STOMATITIS [None]
